FAERS Safety Report 5678245-2 (Version None)
Quarter: 2008Q1

REPORT INFORMATION
  Report Type: 
  Country: None (occurrence: None)
  Receive Date: 20080319
  Receipt Date: 20080313
  Transmission Date: 20080703
  Serious: Yes (Hospitalization)
  Sender: FDA-Public Use
  Company Number: 056-C5013-08030846

PATIENT
  Age: 71 Year
  Sex: Female
  Weight: 68 kg

DRUGS (7)
  1. CC-5013 (LENALIDOMIDE) (CAPSULES) [Suspect]
     Indication: DRUG USE FOR UNKNOWN INDICATION
     Dosage: 15 MG, DAILY, ORAL
     Route: 048
     Dates: start: 20060707, end: 20080312
  2. LEVOTHYROXINE SODIUM [Concomitant]
  3. LASIX [Concomitant]
  4. ALLOPURINOL [Concomitant]
  5. OMEPRAZOLE [Concomitant]
  6. TOPALGIC (TRAMADOL HDYROCHLORIDE) [Concomitant]
  7. POTASSIUM CHLORIDE [Concomitant]

REACTIONS (8)
  - BLOOD BILIRUBIN INCREASED [None]
  - BLOOD LACTATE DEHYDROGENASE INCREASED [None]
  - GOUT [None]
  - HAEMATURIA [None]
  - HAEMOLYSIS [None]
  - HYPOKALAEMIA [None]
  - NEUTROPENIA [None]
  - PYREXIA [None]
